FAERS Safety Report 5737570-7 (Version None)
Quarter: 2008Q2

REPORT INFORMATION
  Report Type: 
  Country: None (occurrence: None)
  Receive Date: 20080514
  Receipt Date: 20070622
  Transmission Date: 20081010
  Serious: No
  Sender: FDA-Public Use
  Company Number: PR-ABBOTT-07P-131-0372876-00

PATIENT
  Age: 65 Year
  Sex: Female

DRUGS (10)
  1. ZEMPLAR [Suspect]
     Indication: RENAL FAILURE
     Route: 042
     Dates: start: 20070118, end: 20070118
  2. ZEMPLAR [Suspect]
  3. ZEMPLAR [Suspect]
  4. SEVELAMER [Concomitant]
     Indication: DRUG USE FOR UNKNOWN INDICATION
     Route: 048
  5. ENALAPRIL MALEATE [Concomitant]
     Indication: DRUG USE FOR UNKNOWN INDICATION
     Route: 048
  6. CARVEDILOL [Concomitant]
     Indication: DRUG USE FOR UNKNOWN INDICATION
     Route: 048
  7. AMLODIPINE [Concomitant]
     Indication: DRUG USE FOR UNKNOWN INDICATION
     Route: 048
  8. SENSIPAL [Concomitant]
     Indication: DRUG USE FOR UNKNOWN INDICATION
  9. RENAX [Concomitant]
     Indication: DRUG USE FOR UNKNOWN INDICATION
  10. ULTRACEPT [Concomitant]
     Indication: DRUG USE FOR UNKNOWN INDICATION

REACTIONS (1)
  - MALAISE [None]
